FAERS Safety Report 15348493 (Version 1)
Quarter: 2018Q3

REPORT INFORMATION
  Report Type: Report from Study
  Country: None (occurrence: IT)
  Receive Date: 20180904
  Receipt Date: 20180904
  Transmission Date: 20181010
  Serious: Yes (Death)
  Sender: FDA-Public Use
  Company Number: IT-ABBVIE-18S-083-2473853-00

PATIENT
  Age: 69 Year
  Sex: Male

DRUGS (1)
  1. DUODOPA [Suspect]
     Active Substance: CARBIDOPA\LEVODOPA
     Indication: PARKINSON^S DISEASE
     Dosage: MD: 3,5+3,CR: 1,ED: 1,3
     Route: 050
     Dates: start: 20161102, end: 20180828

REACTIONS (2)
  - Pneumonia aspiration [Fatal]
  - Cardiac arrest [Fatal]

NARRATIVE: CASE EVENT DATE: 20180828
